FAERS Safety Report 21469481 (Version 1)
Quarter: 2022Q4

REPORT INFORMATION
  Report Type: Spontaneous
  Country: US (occurrence: US)
  Receive Date: 20221018
  Receipt Date: 20221018
  Transmission Date: 20230113
  Serious: No
  Sender: FDA-Public Use
  Company Number: US-BIOGEN-2018BI00508063

PATIENT
  Sex: Male

DRUGS (2)
  1. TECFIDERA [Suspect]
     Active Substance: DIMETHYL FUMARATE
     Indication: Multiple sclerosis
     Dosage: STARTING DOSE
     Route: 050
  2. TECFIDERA [Suspect]
     Active Substance: DIMETHYL FUMARATE
     Dosage: MAINTENANCE DOSE
     Route: 050

REACTIONS (11)
  - Product dose omission issue [Unknown]
  - Petechiae [Unknown]
  - Parkinson^s disease [Unknown]
  - Band sensation [Unknown]
  - Central nervous system lesion [Unknown]
  - Arthritis [Unknown]
  - Nasal injury [Unknown]
  - Sleep terror [Unknown]
  - Gait disturbance [Unknown]
  - Fall [Recovered/Resolved]
  - Hot flush [Recovered/Resolved]
